FAERS Safety Report 17061158 (Version 2)
Quarter: 2019Q4

REPORT INFORMATION
  Report Type: Spontaneous
  Country: US (occurrence: US)
  Receive Date: 20191121
  Receipt Date: 20191211
  Transmission Date: 20200122
  Serious: Yes (Other)
  Sender: FDA-Public Use
  Company Number: US-SA-2019SA321621

PATIENT
  Age: 44 Year
  Sex: Female
  Weight: 66 kg

DRUGS (4)
  1. NEOSAR [Concomitant]
     Active Substance: CYCLOPHOSPHAMIDE
     Indication: BREAST CANCER
     Dosage: UNK UNK, UNK
  2. TAXOTERE [Suspect]
     Active Substance: DOCETAXEL
     Dosage: UNK UNK, Q3W
     Route: 042
     Dates: start: 2004, end: 2004
  3. ADRIAMYCIN [Concomitant]
     Active Substance: DOXORUBICIN HYDROCHLORIDE
     Indication: BREAST CANCER
     Dosage: UNK, UNK
  4. TAXOTERE [Suspect]
     Active Substance: DOCETAXEL
     Indication: BREAST CANCER FEMALE
     Dosage: UNK UNK, Q3W
     Route: 042
     Dates: start: 2004, end: 2004

REACTIONS (6)
  - Impaired quality of life [Unknown]
  - Emotional distress [Unknown]
  - Psychological trauma [Unknown]
  - Anxiety [Unknown]
  - Alopecia [Not Recovered/Not Resolved]
  - Pain [Unknown]

NARRATIVE: CASE EVENT DATE: 2004
